FAERS Safety Report 14690003 (Version 1)
Quarter: 2018Q1

REPORT INFORMATION
  Report Type: Spontaneous
  Country: GB (occurrence: GB)
  Receive Date: 20180328
  Receipt Date: 20180328
  Transmission Date: 20180509
  Serious: Yes (Other)
  Sender: FDA-Public Use
  Company Number: GB-TEVA-2018-GB-872936

PATIENT
  Age: 41 Year
  Sex: Female

DRUGS (1)
  1. CYCLOGEST [Suspect]
     Active Substance: PROGESTERONE
     Route: 065

REACTIONS (3)
  - Depression [Recovering/Resolving]
  - Violence-related symptom [Recovering/Resolving]
  - Suicidal ideation [Recovering/Resolving]
